FAERS Safety Report 10258200 (Version 1)
Quarter: 2014Q2

REPORT INFORMATION
  Report Type: Spontaneous
  Country: US (occurrence: None)
  Receive Date: 20140623
  Receipt Date: 20140623
  Transmission Date: 20141212
  Serious: Yes (Hospitalization, Other)
  Sender: FDA-Public Use
  Company Number: 2014EDG00003

PATIENT
  Age: 33 Year
  Sex: Female

DRUGS (4)
  1. AMFEBUTAMONE [Suspect]
  2. GABAPENTIN (GABAPENTIN) UNKNOWN [Suspect]
  3. ETHANOL (ETHANOL) (ETHANOL) [Suspect]
     Indication: BLOOD ETHANOL
  4. UNSPECIFIED AMPHETAMINES [Concomitant]

REACTIONS (9)
  - Electrocardiogram QT prolonged [None]
  - Mental status changes [None]
  - Overdose [None]
  - Toxicity to various agents [None]
  - Hypotension [None]
  - Convulsion [None]
  - Clonus [None]
  - Drug screen positive [None]
  - Acute lung injury [None]
